FAERS Safety Report 18596665 (Version 1)
Quarter: 2020Q4

REPORT INFORMATION
  Report Type: Spontaneous
  Country: IN (occurrence: IN)
  Receive Date: 20201209
  Receipt Date: 20201209
  Transmission Date: 20210114
  Serious: Yes (Other)
  Sender: FDA-Public Use
  Company Number: IN-AMGEN-INDSP2020198336

PATIENT

DRUGS (1)
  1. NEULASTA [Suspect]
     Active Substance: PEGFILGRASTIM
     Indication: PRODUCT USED FOR UNKNOWN INDICATION
     Dosage: 6 MILLIGRAM, Q3WK (21 DAYS INTERVAL)
     Route: 065

REACTIONS (14)
  - Hyperbilirubinaemia [Unknown]
  - Diarrhoea [Unknown]
  - Injection site pain [Unknown]
  - Vomiting [Unknown]
  - Injury [Unknown]
  - Hepatic enzyme increased [Unknown]
  - Headache [Unknown]
  - Rash [Unknown]
  - Musculoskeletal pain [Unknown]
  - Human chorionic gonadotropin increased [Unknown]
  - Protein urine present [Unknown]
  - Urine analysis abnormal [Unknown]
  - Pruritus [Unknown]
  - Skin burning sensation [Unknown]
